FAERS Safety Report 9994644 (Version 2)
Quarter: 2015Q4

REPORT INFORMATION
  Report Type: Report from Study
  Country: US (occurrence: US)
  Receive Date: 20140311
  Receipt Date: 20151019
  Transmission Date: 20160305
  Serious: Yes (Other)
  Sender: FDA-Public Use
  Company Number: US-ROCHE-1358460

PATIENT
  Sex: Male

DRUGS (9)
  1. TIMOLOL. [Concomitant]
     Active Substance: TIMOLOL
     Dosage: OU
     Route: 065
  2. LUCENTIS [Suspect]
     Active Substance: RANIBIZUMAB
     Indication: NEOVASCULAR AGE-RELATED MACULAR DEGENERATION
     Dosage: OS
     Route: 050
     Dates: start: 20140109
  3. CARVEDILOL. [Concomitant]
     Active Substance: CARVEDILOL
     Route: 065
  4. WARFARIN [Concomitant]
     Active Substance: WARFARIN
  5. ZEAXANTHIN [Concomitant]
     Active Substance: ZEAXANTHIN
     Route: 065
  6. AVASTIN [Suspect]
     Active Substance: BEVACIZUMAB
     Indication: NEOVASCULAR AGE-RELATED MACULAR DEGENERATION
     Dosage: OS
     Route: 050
  7. EYLEA [Concomitant]
     Active Substance: AFLIBERCEPT
     Dosage: OS
     Route: 065
  8. LOSARTAN. [Concomitant]
     Active Substance: LOSARTAN
  9. LUTEIN [Concomitant]
     Active Substance: LUTEIN
     Route: 065

REACTIONS (11)
  - Visual impairment [Unknown]
  - Retinal disorder [Unknown]
  - Renal tubular acidosis [Unknown]
  - Choroidal neovascularisation [Unknown]
  - Photopsia [Unknown]
  - Macular scar [Unknown]
  - Retinoschisis [Unknown]
  - Retinal oedema [Unknown]
  - Vitreous floaters [Unknown]
  - Metamorphopsia [Unknown]
  - Product use issue [Unknown]
